FAERS Safety Report 10267051 (Version 2)
Quarter: 2014Q3

REPORT INFORMATION
  Report Type: Spontaneous
  Country: US (occurrence: None)
  Receive Date: 20140625
  Receipt Date: 20140826
  Transmission Date: 20150326
  Serious: Yes (Hospitalization)
  Sender: FDA-Public Use
  Company Number: FK201402458

PATIENT
  Age: 58 Year
  Sex: Female

DRUGS (20)
  1. HYDROCHLOROTHIAZIDE. [Concomitant]
     Active Substance: HYDROCHLOROTHIAZIDE
  2. LEUCOVORIN CALCIUM. [Suspect]
     Active Substance: LEUCOVORIN CALCIUM
     Indication: PANCREATIC CARCINOMA
     Dosage: 656 MG, 1 IN 2 WK, INTRAVENOUS (NOT OTHERWISE SPECIFIED)
     Route: 042
     Dates: start: 20140123, end: 20140123
  3. DIAZEPAM(DIAZEPAM) (DIAZEPAM) [Concomitant]
     Active Substance: DIAZEPAM
  4. VICODIN [Concomitant]
     Active Substance: ACETAMINOPHEN\HYDROCODONE BITARTRATE
  5. FLUOROURACIL. [Suspect]
     Active Substance: FLUOROURACIL
     Indication: PANCREATIC CARCINOMA
     Dosage: 656 MG, 1 IN 2 WK, INTRAVENOUS BOLUS?
     Route: 040
     Dates: start: 20140123, end: 20140123
  6. CELEXA [Concomitant]
     Active Substance: CITALOPRAM HYDROBROMIDE
  7. DEXAMETHASONE (DEXAMETHASONE) [Concomitant]
     Active Substance: DEXAMETHASONE
  8. IRINOTECAN [Suspect]
     Active Substance: IRINOTECAN
     Indication: PANCREATIC CARCINOMA
     Dosage: 295 MG, 1 IN 2 WK, INTRAVENOUS (NOT OTHERWISE SPECIFIED)
     Route: 042
     Dates: start: 20140123, end: 20140123
  9. OXALIPLATIN. [Suspect]
     Active Substance: OXALIPLATIN
     Indication: PANCREATIC CARCINOMA
     Dosage: 139 MG, 1 IN 2 WK, INTRAVENOUS (NOT OTHERWISE SPECIFIED)
     Route: 042
     Dates: start: 20140123, end: 20140123
  10. OXYCODONE(OXYCODONE) [Concomitant]
     Active Substance: OXYCODONE
  11. DULCOLAX [Concomitant]
     Active Substance: BISACODYL OR DOCUSATE SODIUM
  12. ENOXAPARIN [Concomitant]
     Active Substance: ENOXAPARIN
  13. MAGIC MOUTHWASH [Concomitant]
     Active Substance: DIPHENHYDRAMINE HYDROCHLORIDE\LIDOCAINE HYDROCHLORIDE\NYSTATIN
  14. VITAMIN D [Concomitant]
     Active Substance: CHOLECALCIFEROL
  15. LISINOPRIL(LISINOPRIL) [Concomitant]
     Active Substance: LISINOPRIL
  16. INVESTIGATIONAL DRUG (INVESTIGATIONAL DRUG) (INVESTIGATIONAL DRUG) [Suspect]
     Active Substance: INVESTIGATIONAL PRODUCT
     Indication: PANCREATIC CARCINOMA
     Dosage: 2 IN 1 D
     Route: 048
     Dates: start: 20140123, end: 20140423
  17. ATENOLOL (ATENOLOL) [Concomitant]
     Active Substance: ATENOLOL
  18. CREON [Concomitant]
     Active Substance: PANCRELIPASE AMYLASE\PANCRELIPASE LIPASE\PANCRELIPASE PROTEASE
  19. MORPHINE [Concomitant]
     Active Substance: MORPHINE
  20. ONDANSETRON [Concomitant]
     Active Substance: ONDANSETRON

REACTIONS (3)
  - Hypotension [None]
  - Fatigue [None]
  - Dehydration [None]

NARRATIVE: CASE EVENT DATE: 20140403
